FAERS Safety Report 17367738 (Version 1)
Quarter: 2020Q1

REPORT INFORMATION
  Report Type: Spontaneous
  Country: US (occurrence: US)
  Receive Date: 20200204
  Receipt Date: 20200204
  Transmission Date: 20200409
  Serious: No
  Sender: FDA-Public Use
  Company Number: US-ASTRAZENECA-2020SE14487

PATIENT
  Age: 67 Year
  Sex: Female
  Weight: 86.2 kg

DRUGS (12)
  1. VITAMIN K [Concomitant]
     Active Substance: PHYTONADIONE
     Route: 065
  2. LISINOPRIL. [Suspect]
     Active Substance: LISINOPRIL
     Indication: BLOOD PRESSURE MEASUREMENT
     Route: 048
     Dates: end: 2019
  3. COREG [Concomitant]
     Active Substance: CARVEDILOL
     Indication: ESSENTIAL TREMOR
     Route: 065
  4. ALONDRONATE [Concomitant]
     Indication: OSTEOPOROSIS
     Route: 065
     Dates: start: 2019
  5. ELAQUIS [Concomitant]
     Indication: THROMBOSIS
     Route: 048
     Dates: start: 2018
  6. LYNPARZA [Suspect]
     Active Substance: OLAPARIB
     Indication: OVARIAN CANCER
     Route: 048
     Dates: start: 201812
  7. VIT D [Concomitant]
     Active Substance: VITAMIN D NOS
     Route: 065
  8. MULTIVITAMIN [Concomitant]
     Active Substance: VITAMINS
     Route: 065
  9. LYNPARZA [Suspect]
     Active Substance: OLAPARIB
     Indication: OVARIAN CANCER
     Route: 048
     Dates: start: 201812
  10. LISINOPRIL. [Suspect]
     Active Substance: LISINOPRIL
     Indication: BLOOD PRESSURE MEASUREMENT
     Route: 048
     Dates: start: 2019
  11. MAGNESIUM [Concomitant]
     Active Substance: MAGNESIUM
     Route: 065
  12. NORVASC [Concomitant]
     Active Substance: AMLODIPINE BESYLATE
     Indication: BLOOD PRESSURE MEASUREMENT
     Route: 048
     Dates: start: 2019

REACTIONS (3)
  - Creatinine urine increased [Unknown]
  - Osteoporosis [Not Recovered/Not Resolved]
  - Blood creatinine increased [Not Recovered/Not Resolved]

NARRATIVE: CASE EVENT DATE: 2018
